FAERS Safety Report 5280888-5 (Version None)
Quarter: 2007Q1

REPORT INFORMATION
  Report Type: 
  Country: None (occurrence: None)
  Receive Date: 20061229
  Receipt Date: 20060705
  Transmission Date: 20070707
  Serious: Yes (Other)
  Sender: FDA-Public Use
  Company Number: 2006UW13919

PATIENT
  Age: 59 Year
  Sex: Male
  Weight: 22.679 kg

DRUGS (7)
  1. CRESTOR [Suspect]
     Indication: LOW DENSITY LIPOPROTEIN
     Dosage: 5 MG PO
     Route: 048
     Dates: start: 20060629, end: 20060701
  2. TOPROL-XL [Concomitant]
  3. ZETIA [Concomitant]
  4. NEXIUM ORAL [Concomitant]
  5. KLOR-CON [Concomitant]
  6. ALTACE [Concomitant]
  7. QUININE SULFATE [Concomitant]

REACTIONS (3)
  - INFLUENZA [None]
  - MYALGIA [None]
  - URINARY RETENTION [None]
